FAERS Safety Report 16132179 (Version 7)
Quarter: 2020Q1

REPORT INFORMATION
  Report Type: Report from Study
  Country: US (occurrence: US)
  Receive Date: 20190329
  Receipt Date: 20200317
  Transmission Date: 20200409
  Serious: Yes (Death, Life-Threatening, Other)
  Sender: FDA-Public Use
  Company Number: PHHY2019US070276

PATIENT
  Age: 20 Year
  Sex: Female

DRUGS (3)
  1. FLUDARABINE [Concomitant]
     Active Substance: FLUDARABINE PHOSPHATE
     Indication: CHEMOTHERAPY
     Dosage: UNK
     Route: 065
  2. KYMRIAH [Suspect]
     Active Substance: TISAGENLECLEUCEL
     Indication: B-CELL TYPE ACUTE LEUKAEMIA
     Dosage: ONCE/SINGLE
     Route: 041
     Dates: start: 2018
  3. CYCLOPHOSPHAMIDE. [Concomitant]
     Active Substance: CYCLOPHOSPHAMIDE
     Indication: CHEMOTHERAPY
     Dosage: UNK
     Route: 065

REACTIONS (13)
  - Enterococcal infection [Unknown]
  - Candida infection [Unknown]
  - Cytokine release syndrome [Recovered/Resolved]
  - Neurotoxicity [Recovered/Resolved]
  - Gastrointestinal toxicity [Unknown]
  - Pulmonary toxicity [Unknown]
  - Nephropathy toxic [Unknown]
  - Infection [Unknown]
  - Hepatotoxicity [Unknown]
  - Cytopenia [Unknown]
  - Venoocclusive disease [Fatal]
  - Hypoxia [Unknown]
  - Headache [Unknown]
